FAERS Safety Report 8274580-2 (Version None)
Quarter: 2012Q2

REPORT INFORMATION
  Report Type: 
  Country: None (occurrence: None)
  Receive Date: 20120411
  Receipt Date: 20120405
  Transmission Date: 20120825
  Serious: Yes (Hospitalization)
  Sender: FDA-Public Use
  Company Number: US-GLAXOSMITHKLINE-A0860310A

PATIENT
  Age: 58 Year
  Sex: Female
  Weight: 61.4 kg

DRUGS (6)
  1. CARVEDILOL [Concomitant]
  2. NEURONTIN [Concomitant]
  3. AVANDIA [Suspect]
     Indication: TYPE 2 DIABETES MELLITUS
     Dosage: 8MG PER DAY
     Route: 048
     Dates: start: 20040404, end: 20070528
  4. GLUCOTROL [Concomitant]
  5. GLUCOPHAGE [Concomitant]
  6. ZOLOFT [Concomitant]

REACTIONS (4)
  - CARDIAC FAILURE CONGESTIVE [None]
  - CARDIAC DISORDER [None]
  - MYOCARDIAL INFARCTION [None]
  - CORONARY ARTERY DISEASE [None]
